FAERS Safety Report 6676374-8 (Version None)
Quarter: 2010Q2

REPORT INFORMATION
  Report Type: 
  Country: None (occurrence: None)
  Receive Date: 20100408
  Receipt Date: 20100330
  Transmission Date: 20101027
  Serious: Yes (Hospitalization)
  Sender: FDA-Public Use
  Company Number: 2010-00318

PATIENT
  Age: 67 Year
  Sex: Male
  Weight: 101.7 kg

DRUGS (10)
  1. LISINOPRIL [Suspect]
     Indication: HYPERTENSION
     Dates: start: 20091222
  2. LISINOPRIL [Suspect]
     Indication: HYPERTENSION
     Dates: start: 20100211
  3. DOUBLE-BLIND STUDY DRUG (PLACEBO) [Suspect]
     Indication: HYPERTENSION
     Dosage: ORAL
     Route: 048
     Dates: start: 20100120, end: 20100206
  4. DOUBLE-BLIND STUDY DRUG (PLACEBO) [Suspect]
     Indication: HYPERTENSION
     Dosage: ORAL
     Route: 048
     Dates: start: 20100211
  5. SIMVASTATIN [Concomitant]
  6. TRAMADOL HCL [Concomitant]
  7. DIAZEPAM [Concomitant]
  8. PRILOSEC [Concomitant]
  9. AZOR (AMLODIPINE/OLMESARTAN) 5/40 MG [Concomitant]
  10. MELOXICAM [Concomitant]

REACTIONS (7)
  - BLOOD CHOLESTEROL INCREASED [None]
  - CHEST PAIN [None]
  - DYSPHAGIA [None]
  - GASTRITIS [None]
  - HYPERTENSION [None]
  - OESOPHAGEAL STENOSIS [None]
  - OESOPHAGITIS [None]
